FAERS Safety Report 10334855 (Version 1)
Quarter: 2014Q3

REPORT INFORMATION
  Report Type: Spontaneous
  Country: GB (occurrence: GB)
  Receive Date: 20140723
  Receipt Date: 20140723
  Transmission Date: 20150326
  Serious: Yes (Hospitalization)
  Sender: FDA-Public Use
  Company Number: PHFR2014GB005142

PATIENT
  Age: 67 Year
  Sex: Male

DRUGS (8)
  1. CLOZAPINE. [Suspect]
     Active Substance: CLOZAPINE
     Indication: PSYCHOTIC DISORDER
     Dosage: 50MG IN THE MORNING, 125MG AT NIGHT.
     Route: 048
     Dates: start: 20140617
  2. CITALOPRAM [Concomitant]
     Active Substance: CITALOPRAM HYDROBROMIDE
  3. LEVOTHYROXINE [Concomitant]
     Active Substance: LEVOTHYROXINE
  4. QUETIAPINE [Concomitant]
     Active Substance: QUETIAPINE
  5. COLECALCIFEROL [Concomitant]
     Active Substance: CHOLECALCIFEROL
  6. SIMVASTATIN. [Concomitant]
     Active Substance: SIMVASTATIN
  7. PROCYCLIDINE [Concomitant]
     Active Substance: PROCYCLIDINE
  8. CLOPIDOGREL [Concomitant]
     Active Substance: CLOPIDOGREL BISULFATE

REACTIONS (2)
  - Oxygen saturation decreased [Unknown]
  - Pneumonia [Recovered/Resolved]

NARRATIVE: CASE EVENT DATE: 20140704
